FAERS Safety Report 9739149 (Version 2)
Quarter: 2013Q4

REPORT INFORMATION
  Report Type: Spontaneous
  Country: JP (occurrence: JP)
  Receive Date: 20131209
  Receipt Date: 20131223
  Transmission Date: 20140711
  Serious: Yes (Hospitalization, Other)
  Sender: FDA-Public Use
  Company Number: JP-ASTELLAS-2013US012713

PATIENT
  Sex: Female

DRUGS (1)
  1. TARCEVA [Suspect]
     Indication: NON-SMALL CELL LUNG CANCER
     Dosage: 150 MG, UID/QD
     Route: 048

REACTIONS (2)
  - Gastric neoplasm [Unknown]
  - Dysphagia [Unknown]
